FAERS Safety Report 8580603-3 (Version None)
Quarter: 2012Q3

REPORT INFORMATION
  Report Type: 
  Country: None (occurrence: None)
  Receive Date: 20120809
  Receipt Date: 20120726
  Transmission Date: 20120928
  Serious: Yes (Other)
  Sender: FDA-Public Use
  Company Number: DE-AMGEN-DEUCT2012041573

PATIENT
  Age: 44 Year
  Sex: Female
  Weight: 173 kg

DRUGS (5)
  1. ARAVA [Concomitant]
     Indication: RHEUMATOID ARTHRITIS
     Dosage: 20 MG, UNK
     Dates: end: 20120215
  2. ETANERCEPT [Suspect]
     Indication: RHEUMATOID ARTHRITIS
     Dosage: 50 MG, QWK
     Route: 058
     Dates: start: 20110725, end: 20120601
  3. PREDNISONE TAB [Concomitant]
     Indication: RHEUMATOID ARTHRITIS
     Dosage: 5 MG, UNK
     Dates: start: 20110801
  4. SYMBICORT [Concomitant]
     Indication: ASTHMA
     Dosage: 2 X 2 HUBS
  5. PREDNISONE TAB [Concomitant]
     Dosage: 3 MG, UNK
     Dates: start: 20111103, end: 20120101

REACTIONS (1)
  - PNEUMONIA [None]
